FAERS Safety Report 11287075 (Version 2)
Quarter: 2018Q1

REPORT INFORMATION
  Report Type: Spontaneous
  Country: US (occurrence: US)
  Receive Date: 20150721
  Receipt Date: 20180208
  Transmission Date: 20180508
  Serious: No
  Sender: FDA-Public Use
  Company Number: US-ASTRAZENECA-2014SE84017

PATIENT
  Age: 27309 Day
  Sex: Male
  Weight: 117.9 kg

DRUGS (2)
  1. BYETTA [Suspect]
     Active Substance: EXENATIDE
     Indication: TYPE 2 DIABETES MELLITUS
     Route: 058
  2. BYETTA [Suspect]
     Active Substance: EXENATIDE
     Indication: TYPE 2 DIABETES MELLITUS
     Route: 058

REACTIONS (7)
  - Intentional product misuse [Unknown]
  - Injection site haemorrhage [Unknown]
  - Dry skin [Not Recovered/Not Resolved]
  - Product quality issue [Unknown]
  - Pruritus [Not Recovered/Not Resolved]
  - Nasal congestion [Unknown]
  - Circumstance or information capable of leading to medication error [Unknown]

NARRATIVE: CASE EVENT DATE: 20150709
